FAERS Safety Report 18171574 (Version 1)
Quarter: 2020Q3

REPORT INFORMATION
  Report Type: Spontaneous
  Country: US (occurrence: US)
  Receive Date: 20200819
  Receipt Date: 20200819
  Transmission Date: 20201103
  Serious: Yes (Death, Other)
  Sender: FDA-Public Use
  Company Number: US-GILEAD-2020-0490893

PATIENT
  Age: 77 Year
  Sex: Female
  Weight: 93.5 kg

DRUGS (18)
  1. ZOSYN [Concomitant]
     Active Substance: PIPERACILLIN SODIUM\TAZOBACTAM SODIUM
  2. TPN [AMINO ACIDS NOS;CARBOHYDRATES NOS;MINERALS NOS;VITAMINS NOS] [Concomitant]
     Active Substance: AMINO ACIDS\CARBOHYDRATES\MINERALS\VITAMINS
  3. PROGRAF [Concomitant]
     Active Substance: TACROLIMUS
  4. ZYVOX [Concomitant]
     Active Substance: LINEZOLID
  5. HALDOL [Concomitant]
     Active Substance: HALOPERIDOL
  6. LOVENOX HP [Concomitant]
     Active Substance: ENOXAPARIN SODIUM
  7. REMDESIVIR. [Suspect]
     Active Substance: REMDESIVIR
     Indication: COVID-19
     Dosage: 100 MG, QD
     Route: 042
     Dates: start: 20200716, end: 20200720
  8. AMLODIPINE [Concomitant]
     Active Substance: AMLODIPINE BESYLATE
  9. DECADRON [Concomitant]
     Active Substance: DEXAMETHASONE
  10. ASA [Concomitant]
     Active Substance: ASPIRIN
  11. CELLCEPT [Concomitant]
     Active Substance: MYCOPHENOLATE MOFETIL\MYCOPHENOLATE MOFETIL HYDROCHLORIDE
  12. TOCILIZUMAB. [Concomitant]
     Active Substance: TOCILIZUMAB
     Dosage: 360 MG, ONCE
     Route: 042
     Dates: start: 20200715, end: 20200715
  13. HYDRALAZINE [Concomitant]
     Active Substance: HYDRALAZINE HYDROCHLORIDE
  14. PROPOFOL. [Concomitant]
     Active Substance: PROPOFOL
  15. LOSARTAN. [Concomitant]
     Active Substance: LOSARTAN
  16. METOPROLOL. [Concomitant]
     Active Substance: METOPROLOL
  17. VECURONIUM [VECURONIUM BROMIDE] [Concomitant]
  18. AMIODARONE [Concomitant]
     Active Substance: AMIODARONE

REACTIONS (2)
  - Alanine aminotransferase increased [Not Recovered/Not Resolved]
  - Death [Fatal]

NARRATIVE: CASE EVENT DATE: 20200723
